APPROVED DRUG PRODUCT: SORBITOL 3.3% IN PLASTIC CONTAINER
Active Ingredient: SORBITOL
Strength: 3.3GM/100ML
Dosage Form/Route: SOLUTION;IRRIGATION
Application: N016741 | Product #001
Applicant: B BRAUN MEDICAL INC
Approved: Approved Prior to Jan 1, 1982 | RLD: No | RS: No | Type: RX